FAERS Safety Report 7276693-0 (Version None)
Quarter: 2011Q1

REPORT INFORMATION
  Report Type: 
  Country: None (occurrence: None)
  Receive Date: 20110204
  Receipt Date: 20110203
  Transmission Date: 20110831
  Serious: Yes (Death)
  Sender: FDA-Public Use
  Company Number: FR-ABBOTT-11P-056-0702273-00

PATIENT
  Age: 58 Year
  Sex: Male

DRUGS (4)
  1. TRUVADA [Suspect]
     Indication: HIV INFECTION
     Route: 048
     Dates: start: 20070419
  2. FOSAMPRENAVIR [Concomitant]
     Indication: HIV INFECTION
     Dates: start: 20070419, end: 20100920
  3. NORVIR [Suspect]
     Indication: HIV INFECTION
     Route: 048
     Dates: start: 20070419
  4. DARUNAVIR [Suspect]
     Indication: HIV INFECTION
     Route: 048
     Dates: start: 20100921

REACTIONS (1)
  - MYOCARDIAL INFARCTION [None]
